FAERS Safety Report 23932883 (Version 3)
Quarter: 2024Q3

REPORT INFORMATION
  Report Type: Spontaneous
  Country: ES (occurrence: ES)
  Receive Date: 20240603
  Receipt Date: 20240814
  Transmission Date: 20241017
  Serious: Yes (Hospitalization, Other)
  Sender: OTSUKA
  Company Number: ES-OTSUKA-2024_015249

PATIENT
  Age: 59 Year
  Sex: Female

DRUGS (5)
  1. ARIPIPRAZOLE [Suspect]
     Active Substance: ARIPIPRAZOLE
     Indication: Dementia
     Dosage: 5 MG, QD (IN THE MORNINGS)
     Route: 065
     Dates: start: 20240305, end: 20240306
  2. ARIPIPRAZOLE [Suspect]
     Active Substance: ARIPIPRAZOLE
     Indication: Major depression
  3. LURASIDONE [Suspect]
     Active Substance: LURASIDONE
     Indication: Antidepressant therapy
     Dosage: 74 MG, QD
     Route: 065
     Dates: start: 20240308, end: 20240502
  4. SERTRALINE [Concomitant]
     Active Substance: SERTRALINE HYDROCHLORIDE
     Indication: Depression
     Dosage: 50 MG, IN MORNING
     Route: 065
     Dates: start: 20240125, end: 20240305
  5. LORAZEPAM [Concomitant]
     Active Substance: LORAZEPAM
     Indication: Catatonia
     Dosage: 1 MG (1MG, HALF IN THE MORNINGS AND ONE AT NIGHT)
     Route: 065
     Dates: start: 20240306, end: 20240311

REACTIONS (5)
  - Dementia Alzheimer^s type [Not Recovered/Not Resolved]
  - Tic [Recovered/Resolved]
  - Tremor [Recovered/Resolved]
  - Product use in unapproved indication [Unknown]
  - Therapy change [Unknown]

NARRATIVE: CASE EVENT DATE: 20240305
